FAERS Safety Report 7918025-8 (Version None)
Quarter: 2011Q4

REPORT INFORMATION
  Report Type: 
  Country: None (occurrence: None)
  Receive Date: 20111114
  Receipt Date: 20111101
  Transmission Date: 20120403
  Serious: Yes (Other)
  Sender: FDA-Public Use
  Company Number: 100025131

PATIENT
  Sex: Male

DRUGS (1)
  1. VIIBRYD [Suspect]
     Dosage: ORAL
     Route: 048

REACTIONS (1)
  - PARKINSONISM [None]
